FAERS Safety Report 7392903-3 (Version None)
Quarter: 2011Q2

REPORT INFORMATION
  Report Type: 
  Country: None (occurrence: None)
  Receive Date: 20110404
  Receipt Date: 20110329
  Transmission Date: 20111010
  Serious: Yes (Hospitalization)
  Sender: FDA-Public Use
  Company Number: US-ABBOTT-11P-163-0715396-00

PATIENT
  Sex: Female
  Weight: 83.99 kg

DRUGS (5)
  1. HUMIRA [Suspect]
     Indication: RHEUMATOID ARTHRITIS
     Route: 058
     Dates: start: 20040101, end: 20060101
  2. ANTIBIOTICS [Suspect]
     Indication: SINUSITIS
     Dates: start: 20110201
  3. ARAVA [Concomitant]
     Indication: PRODUCT USED FOR UNKNOWN INDICATION
  4. METHOTREXATE [Concomitant]
     Indication: PRODUCT USED FOR UNKNOWN INDICATION
  5. WARFARIN SODIUM [Concomitant]
     Indication: COAGULOPATHY

REACTIONS (7)
  - PAIN [None]
  - DYSGEUSIA [None]
  - BONE PAIN [None]
  - FUNGAL INFECTION [None]
  - PAIN IN EXTREMITY [None]
  - FEMUR FRACTURE [None]
  - SINUSITIS [None]
